FAERS Safety Report 11999610 (Version 1)
Quarter: 2016Q1

REPORT INFORMATION
  Report Type: Spontaneous
  Country: US (occurrence: US)
  Receive Date: 20160204
  Receipt Date: 20160204
  Transmission Date: 20160526
  Serious: Yes (Hospitalization, Other)
  Sender: FDA-Public Use
  Company Number: US-AMGEN-USASP2016011496

PATIENT
  Age: 63 Year
  Sex: Female

DRUGS (2)
  1. ENBREL [Suspect]
     Active Substance: ETANERCEPT
     Dosage: UNK
     Route: 065
  2. ENBREL [Suspect]
     Active Substance: ETANERCEPT
     Indication: PRODUCT USED FOR UNKNOWN INDICATION
     Dosage: UNK UNK, UNK
     Route: 065

REACTIONS (12)
  - Ileostomy [Unknown]
  - Intestinal obstruction [Unknown]
  - Mobility decreased [Recovered/Resolved]
  - Injection site discomfort [Unknown]
  - Pain [Unknown]
  - Wrong technique in product usage process [Unknown]
  - Asthenia [Recovered/Resolved]
  - Injection site extravasation [Unknown]
  - Musculoskeletal stiffness [Unknown]
  - Injection site reaction [Unknown]
  - Knee arthroplasty [Unknown]
  - Colectomy [Unknown]

NARRATIVE: CASE EVENT DATE: 2009
